FAERS Safety Report 6215551-7 (Version None)
Quarter: 2009Q2

REPORT INFORMATION
  Report Type: 
  Country: None (occurrence: None)
  Receive Date: 20090605
  Receipt Date: 20090603
  Transmission Date: 20091009
  Serious: Yes (Other)
  Sender: FDA-Public Use
  Company Number: GB-SP-2009-02274

PATIENT
  Age: 66 Year
  Sex: Male

DRUGS (3)
  1. IMMUCYST [Suspect]
     Indication: DRUG USE FOR UNKNOWN INDICATION
     Route: 043
     Dates: start: 20090402, end: 20090507
  2. IMMUCYST [Suspect]
     Route: 043
     Dates: start: 20090402, end: 20090507
  3. CARDIAC DRUGS [Concomitant]

REACTIONS (5)
  - DYSURIA [None]
  - NOCTURIA [None]
  - PERINEAL PAIN [None]
  - POLLAKIURIA [None]
  - WHITE BLOOD CELLS URINE POSITIVE [None]
